FAERS Safety Report 7423084-5 (Version None)
Quarter: 2011Q2

REPORT INFORMATION
  Report Type: 
  Country: None (occurrence: None)
  Receive Date: 20110419
  Receipt Date: 20110404
  Transmission Date: 20111010
  Serious: Yes (Hospitalization, Other)
  Sender: FDA-Public Use
  Company Number: US-ASTRAZENECA-2011SE19223

PATIENT
  Age: 44 Year
  Sex: Female

DRUGS (24)
  1. TESSALON [Concomitant]
     Indication: COUGH
     Route: 048
  2. CRESTOR [Suspect]
     Route: 048
  3. TESSALON [Concomitant]
     Route: 048
  4. RENVELA [Concomitant]
     Route: 048
  5. SODIUM CHLORIDE [Concomitant]
     Dosage: 0.9 PERCENT
  6. SENOKOT [Concomitant]
     Route: 048
  7. PLAVIX [Concomitant]
     Route: 048
  8. NOVOLOG [Concomitant]
     Dosage: 100 UNIT/ML TAKE THREE TIMES A DAY
     Route: 058
  9. VENTOLILN HFA [Concomitant]
     Indication: WHEEZING
     Dosage: 90 MCG 2 PUFFS EVERY 6 HOURS
     Route: 055
  10. NYSTAT-RX [Concomitant]
     Dosage: 1000000000 UNIT TWO TIMES A DAY APPLY TO AFFECTED AREA
     Route: 061
  11. LIDOCAINE [Concomitant]
     Dosage: TWO PATCH DAILY
  12. NORCO [Concomitant]
     Indication: PAIN
     Dosage: 10/325 MG1 TAB EVERY FOUR HOURS AS NEEDED
     Route: 048
  13. CLARITIN [Concomitant]
     Route: 048
  14. PROAIR HFA [Concomitant]
     Indication: WHEEZING
     Dosage: 90 MCG 2 PUFFS EVERY 6 HOURS
     Route: 055
  15. HUMULIN N [Concomitant]
     Dosage: 100 UNIT/ML 10 UNITS IN AM 5 UNITS PM
     Route: 058
  16. ADVAIR DISKUS 100/50 [Concomitant]
     Dosage: 100.50 MCG I1 PUFF IN LUNGS TWO TIMES A DAY
     Route: 055
  17. ZANTAC [Concomitant]
     Route: 048
  18. PROVENTIL [Concomitant]
     Indication: WHEEZING
     Dosage: 90 MCG 2 PUFFS EVERY 6 HOURS
     Route: 055
  19. COREG [Concomitant]
     Route: 048
  20. FOLIC ACID [Concomitant]
     Route: 048
  21. K-DUR [Concomitant]
     Route: 048
  22. LEVAQUIN [Concomitant]
     Dosage: 500 MG EVERY 48 HOURS
     Route: 048
  23. COLACE [Concomitant]
     Route: 048
  24. ASPIR-81 [Concomitant]
     Route: 048

REACTIONS (18)
  - RENAL FAILURE CHRONIC [None]
  - HOT FLUSH [None]
  - CONSTIPATION [None]
  - DIZZINESS [None]
  - LOBAR PNEUMONIA [None]
  - DIARRHOEA [None]
  - TYPE 1 DIABETES MELLITUS [None]
  - OROPHARYNGEAL PAIN [None]
  - PERITONEAL INFECTION [None]
  - HAEMORRHAGIC ANAEMIA [None]
  - HEARING IMPAIRED [None]
  - ORTHOSTATIC HYPOTENSION [None]
  - FATIGUE [None]
  - HYPOGLYCAEMIC SEIZURE [None]
  - PHARYNGITIS STREPTOCOCCAL [None]
  - CORONARY ARTERY DISEASE [None]
  - HEADACHE [None]
  - ABDOMINAL PAIN [None]
